FAERS Safety Report 5992146-1 (Version None)
Quarter: 2008Q4

REPORT INFORMATION
  Report Type: 
  Country: None (occurrence: None)
  Receive Date: 20081202
  Receipt Date: 20080124
  Transmission Date: 20090506
  Serious: Yes (Hospitalization)
  Sender: FDA-Public Use
  Company Number: WAES 0706USA03507

PATIENT
  Age: 53 Year
  Sex: Male
  Weight: 77.1115 kg

DRUGS (1)
  1. FOSAMAX [Suspect]
     Indication: OSTEITIS DEFORMANS
     Dosage: 70 MG/PO
     Route: 048

REACTIONS (10)
  - ABDOMINAL PAIN UPPER [None]
  - GASTRIC DISORDER [None]
  - GASTRIC ULCER [None]
  - GASTRITIS EROSIVE [None]
  - PAIN IN JAW [None]
  - PROSTATITIS [None]
  - RESORPTION BONE INCREASED [None]
  - TOOTH LOSS [None]
  - TREATMENT NONCOMPLIANCE [None]
  - URINARY RETENTION [None]
